FAERS Safety Report 6865118-2 (Version None)
Quarter: 2010Q3

REPORT INFORMATION
  Report Type: 
  Country: None (occurrence: None)
  Receive Date: 20100721
  Receipt Date: 20080422
  Transmission Date: 20110219
  Serious: Yes (Other)
  Sender: FDA-Public Use
  Company Number: US-PFIZER INC-2008034157

PATIENT
  Sex: Female
  Weight: 127.2 kg

DRUGS (12)
  1. CHANTIX [Suspect]
     Indication: SMOKING CESSATION THERAPY
     Dates: start: 20070101, end: 20070101
  2. LEXAPRO [Concomitant]
  3. TOPAMAX [Concomitant]
  4. ZYPREXA [Concomitant]
  5. SONATA [Concomitant]
  6. OXYCODONE [Concomitant]
  7. FENTANYL [Concomitant]
  8. LEVONORGESTREL [Concomitant]
  9. MONTELUKAST SODIUM [Concomitant]
  10. ALLEGRA [Concomitant]
  11. CALCIUM [Concomitant]
  12. MULTI-VITAMINS [Concomitant]

REACTIONS (1)
  - SUICIDAL IDEATION [None]
